FAERS Safety Report 15898560 (Version 5)
Quarter: 2024Q1

REPORT INFORMATION
  Report Type: Other
  Country: IN (occurrence: None)
  Receive Date: 20190201
  Receipt Date: 20240329
  Transmission Date: 20240410
  Serious: Yes (Death, Other)
  Sender: FDA-Public Use
  Company Number: IN-ROCHE-2254167

PATIENT

DRUGS (3)
  1. RITUXIMAB [Suspect]
     Active Substance: RITUXIMAB
     Indication: Follicular lymphoma
     Dosage: ON DAY 1
     Route: 042
  2. BENDAMUSTINE [Suspect]
     Active Substance: BENDAMUSTINE
     Indication: Follicular lymphoma
     Dosage: ON DAY 1-2; EVERY 4 WEEKS
     Route: 048
  3. LENALIDOMIDE [Suspect]
     Active Substance: LENALIDOMIDE
     Indication: Follicular lymphoma
     Dosage: DAY 1 - DAY 21; EVERY 4 WEEKS
     Route: 048

REACTIONS (11)
  - Death [Fatal]
  - Anaemia [Unknown]
  - Febrile neutropenia [Unknown]
  - Skin toxicity [Unknown]
  - Diarrhoea [Unknown]
  - Vomiting [Unknown]
  - Nephropathy toxic [Unknown]
  - Infusion related reaction [Unknown]
  - Neutropenia [Unknown]
  - Thrombocytopenia [Unknown]
  - Hypertransaminasaemia [Unknown]
